FAERS Safety Report 18883019 (Version 1)
Quarter: 2021Q1

REPORT INFORMATION
  Report Type: Spontaneous
  Country: US (occurrence: US)
  Receive Date: 20210211
  Receipt Date: 20210211
  Transmission Date: 20210420
  Serious: Yes (Life-Threatening, Other)
  Sender: FDA-Public Use
  Company Number: US-TOLMAR, INC.-21US025341

PATIENT
  Age: 25 Year
  Sex: Male

DRUGS (14)
  1. COLISTIN [Suspect]
     Active Substance: COLISTIN
     Indication: PNEUMONIA
     Dosage: 150 MG, Q 8 HR
  2. METRONIDAZOLE. [Suspect]
     Active Substance: METRONIDAZOLE
     Indication: PNEUMONIA
     Dosage: 500 MG, Q 8 HR
     Route: 042
  3. VANCOMYCIN [Suspect]
     Active Substance: VANCOMYCIN
     Indication: PNEUMONIA
     Dosage: 750 MG, Q 8 HR
     Route: 042
  4. ERTAPENEM. [Suspect]
     Active Substance: ERTAPENEM SODIUM
     Indication: PNEUMONIA
     Dosage: 1000 MG, QD
     Route: 042
  5. LINEZOLID. [Suspect]
     Active Substance: LINEZOLID
     Indication: PNEUMONIA
     Route: 065
  6. MINOCYCLINE [Suspect]
     Active Substance: MINOCYCLINE HYDROCHLORIDE
     Indication: PNEUMONIA
     Dosage: 200 MG, Q 12 HR
     Route: 048
  7. MEROPENEM. [Suspect]
     Active Substance: MEROPENEM
     Indication: PNEUMONIA
     Dosage: 500 MG, Q 6 HR
     Route: 042
  8. COLISTIN [Suspect]
     Active Substance: COLISTIN
     Dosage: UNK
     Route: 065
  9. POLYMYXIN B. [Suspect]
     Active Substance: POLYMYXIN B
     Dosage: UNK
     Route: 065
  10. CEFEPIME [Suspect]
     Active Substance: CEFEPIME HYDROCHLORIDE
     Indication: PNEUMONIA
     Dosage: 1000 MG, Q 8 HR
     Route: 042
  11. POLYMYXIN B. [Suspect]
     Active Substance: POLYMYXIN B
     Indication: PNEUMONIA
     Dosage: 800000 INTERNATIONAL UNIT, Q 12 HR
     Route: 042
  12. MINOCYCLINE [Suspect]
     Active Substance: MINOCYCLINE HYDROCHLORIDE
     Indication: ACINETOBACTER INFECTION
     Dosage: 100 MG, Q 12 HR
     Route: 042
  13. MICAFUNGIN. [Suspect]
     Active Substance: MICAFUNGIN SODIUM
     Indication: CANDIDA INFECTION
     Dosage: 150 MG, QD
     Route: 042
  14. CEFTOLOZANE;TAZOBACTAM [Suspect]
     Active Substance: CEFTOLOZANE SULFATE\TAZOBACTAM SODIUM
     Indication: PSEUDOMONAS INFECTION
     Dosage: 3 GRAM, Q 8 HR
     Route: 042

REACTIONS (6)
  - Drug resistance [Unknown]
  - Leukocytosis [Unknown]
  - Cardiac arrest [Unknown]
  - Pneumonia [Unknown]
  - Pneumothorax [Recovered/Resolved]
  - Bronchiectasis [Unknown]
